FAERS Safety Report 10606805 (Version 1)
Quarter: 2014Q4

REPORT INFORMATION
  Report Type: Spontaneous
  Country: US (occurrence: None)
  Receive Date: 20141124
  Receipt Date: 20141124
  Transmission Date: 20150529
  Serious: No
  Sender: FDA-Public Use
  Company Number: None

PATIENT
  Age: 43 Year
  Sex: Female
  Weight: 95.26 kg

DRUGS (2)
  1. LIDOCAINE. [Suspect]
     Active Substance: LIDOCAINE
     Indication: MUSCULOSKELETAL PAIN
     Dosage: PATCH, APPLIED AS A MEDICATED PATCH TO SKIN?
     Dates: start: 20141020
  2. LIDOCAINE. [Suspect]
     Active Substance: LIDOCAINE
     Indication: SCIATICA
     Dosage: PATCH, APPLIED AS A MEDICATED PATCH TO SKIN?
     Dates: start: 20141020

REACTIONS (5)
  - Product quality issue [None]
  - Product adhesion issue [None]
  - Product substitution issue [None]
  - Pain [None]
  - Drug ineffective [None]
